FAERS Safety Report 22167262 (Version 3)
Quarter: 2023Q2

REPORT INFORMATION
  Report Type: Report from Study
  Country: KR (occurrence: KR)
  Receive Date: 20230403
  Receipt Date: 20230412
  Transmission Date: 20230722
  Serious: Yes (Hospitalization, Other)
  Sender: FDA-Public Use
  Company Number: KR-ABBVIE-4713171

PATIENT
  Age: 71 Year
  Sex: Male
  Weight: 54 kg

DRUGS (11)
  1. SKYRIZI [Suspect]
     Active Substance: RISANKIZUMAB-RZAA
     Indication: Psoriasis
     Route: 058
     Dates: start: 20220317, end: 20220317
  2. SKYRIZI [Suspect]
     Active Substance: RISANKIZUMAB-RZAA
     Route: 058
     Dates: start: 20221013, end: 20221013
  3. SKYRIZI [Suspect]
     Active Substance: RISANKIZUMAB-RZAA
     Route: 058
     Dates: start: 20220413, end: 20220413
  4. SKYRIZI [Suspect]
     Active Substance: RISANKIZUMAB-RZAA
     Route: 058
     Dates: start: 20230330, end: 20230330
  5. SKYRIZI [Suspect]
     Active Substance: RISANKIZUMAB-RZAA
     Route: 058
     Dates: start: 20220714, end: 20220714
  6. SKYRIZI [Suspect]
     Active Substance: RISANKIZUMAB-RZAA
     Route: 058
     Dates: start: 20230105, end: 20230105
  7. PYRIDOXINE SINIL TAB 50mg (pyridoxine hydrochloride 50 ) [Concomitant]
     Indication: Latent tuberculosis
     Dosage: 50 MILLIGRAM
     Route: 048
     Dates: start: 20220413, end: 20220711
  8. CIPOL-N SC 25mg (cyclosporine 25 ) [Concomitant]
     Indication: Psoriasis
     Dosage: 25 MILLIGRAM
     Route: 048
     Dates: start: 20201203, end: 20220415
  9. ALLEGRA TAB 180mg (fexofenadine hydrochloride 180 ) [Concomitant]
     Indication: Psoriasis
     Dosage: 180 MILLIGRAM
     Route: 048
     Dates: start: 20220317, end: 20220711
  10. SHINPOONG ISONIAZID TAB 100mg (isoniazid 100 ) [Concomitant]
     Indication: Latent tuberculosis
     Dosage: 100 MILLIGRAM
     Route: 048
     Dates: start: 20220223, end: 20221120
  11. STOGAR TAB 10mg (lafutidine 10 ) [Concomitant]
     Indication: Gastrointestinal disorder prophylaxis
     Dosage: 10 MILLIGRAM
     Route: 048
     Dates: start: 20201104, end: 20220415

REACTIONS (2)
  - Gastric cancer [Recovered/Resolved]
  - Oesophageal carcinoma [Recovered/Resolved]

NARRATIVE: CASE EVENT DATE: 20221201
